FAERS Safety Report 5411906-9 (Version None)
Quarter: 2007Q3

REPORT INFORMATION
  Report Type: 
  Country: None (occurrence: None)
  Receive Date: 20070807
  Receipt Date: 20070807
  Transmission Date: 20080115
  Serious: Yes (Death)
  Sender: FDA-Public Use
  Company Number: None

PATIENT
  Age: 68 Year
  Sex: Female
  Weight: 66.2252 kg

DRUGS (2)
  1. COMMIT [Suspect]
     Indication: SMOKER
  2. COLLOIDAL SILVER (LIQUID) [Suspect]
     Indication: MULTIPLE SCLEROSIS

REACTIONS (1)
  - DEATH [None]
